FAERS Safety Report 23916701 (Version 3)
Quarter: 2024Q2

REPORT INFORMATION
  Report Type: Spontaneous
  Country: JP (occurrence: None)
  Receive Date: 20240529
  Receipt Date: 20240626
  Transmission Date: 20240716
  Serious: Yes (Other)
  Sender: FDA-Public Use
  Company Number: 2024A123932

PATIENT
  Age: 61 Year
  Sex: Female

DRUGS (4)
  1. OLAPARIB [Suspect]
     Active Substance: OLAPARIB
     Indication: Breast cancer female
     Dosage: NUMBER OF SEPARATE DOSAGES UNKNOWN
     Route: 048
     Dates: start: 20190905, end: 20210209
  2. PALBOCICLIB [Concomitant]
     Active Substance: PALBOCICLIB
     Indication: Breast cancer female
  3. EPINASTINE [Concomitant]
     Active Substance: EPINASTINE
  4. LOXOPROFEN [Concomitant]
     Active Substance: LOXOPROFEN

REACTIONS (4)
  - Metastases to central nervous system [Unknown]
  - Malignant neoplasm progression [Unknown]
  - BRCA2 gene mutation [Unknown]
  - Drug resistance [Unknown]

NARRATIVE: CASE EVENT DATE: 20230227
